FAERS Safety Report 7829371-0 (Version None)
Quarter: 2011Q4

REPORT INFORMATION
  Report Type: 
  Country: None (occurrence: None)
  Receive Date: 20111020
  Receipt Date: 20111012
  Transmission Date: 20120403
  Serious: Yes (Other)
  Sender: FDA-Public Use
  Company Number: US-SANOFI-AVENTIS-2011SA067599

PATIENT
  Sex: Female

DRUGS (4)
  1. METFORMIN HCL [Suspect]
     Route: 065
  2. CEPHALEXIN [Suspect]
     Route: 065
  3. LANTUS [Suspect]
     Dosage: DOSE:14 UNIT(S)
     Route: 058
     Dates: start: 20110701, end: 20110901
  4. SOLOSTAR [Suspect]
     Dates: start: 20110701, end: 20110901

REACTIONS (5)
  - CHOLELITHIASIS [None]
  - TOOTH INFECTION [None]
  - BLOOD GLUCOSE INCREASED [None]
  - VISION BLURRED [None]
  - LYMPHADENOPATHY [None]
